FAERS Safety Report 9259358 (Version 2)
Quarter: 2013Q2

REPORT INFORMATION
  Report Type: Report from Study
  Country: CA (occurrence: CA)
  Receive Date: 20130427
  Receipt Date: 20130430
  Transmission Date: 20140414
  Serious: Yes (Death, Other)
  Sender: FDA-Public Use
  Company Number: CA-ROCHE-1049238

PATIENT
  Age: 87 Year
  Sex: Male
  Weight: 75.5 kg

DRUGS (15)
  1. RITUXIMAB [Suspect]
     Indication: CHRONIC LYMPHOCYTIC LEUKAEMIA
     Dosage: DATE OF LAST DOSE PRIOR TO SAE: 08/FEB/2012 C 2 AND C 3.
     Route: 042
     Dates: start: 20111214, end: 20120313
  2. RITUXIMAB [Suspect]
     Dosage: C1
     Route: 042
  3. CHLORAMBUCIL [Suspect]
     Indication: CHRONIC LYMPHOCYTIC LEUKAEMIA
     Dosage: DATE OF LAST DOSE PRIOR TO SAE: 22/FEB/2012
     Route: 048
     Dates: start: 20111214, end: 20120313
  4. 282 MEP [Concomitant]
     Route: 065
     Dates: start: 200604
  5. ASCORBIC ACID [Concomitant]
     Route: 065
     Dates: start: 2001
  6. FERROUS FUMARATE [Concomitant]
     Route: 065
     Dates: start: 201103
  7. ACETAMINOPHEN [Concomitant]
     Route: 065
     Dates: start: 20060511
  8. ACETAMINOPHEN [Concomitant]
     Route: 065
     Dates: start: 20110505
  9. GRAVOL [Concomitant]
     Route: 065
     Dates: start: 201012
  10. GRAVOL [Concomitant]
     Route: 065
     Dates: start: 20110505
  11. MILK OF MAGNESIA [Concomitant]
     Route: 065
     Dates: start: 20111001
  12. MILK OF MAGNESIA [Concomitant]
     Route: 065
     Dates: start: 20110505
  13. ACYCLOVIR [Concomitant]
     Route: 065
     Dates: start: 20111213
  14. ACYCLOVIR [Concomitant]
     Route: 065
     Dates: start: 20110505
  15. ALLOPURINOL [Concomitant]
     Route: 065
     Dates: start: 200604

REACTIONS (1)
  - Adenocarcinoma [Fatal]
